FAERS Safety Report 11689464 (Version 1)
Quarter: 2015Q4

REPORT INFORMATION
  Report Type: Report from Study
  Country: FR (occurrence: FR)
  Receive Date: 20151102
  Receipt Date: 20151102
  Transmission Date: 20160304
  Serious: Yes (Death, Hospitalization, Other)
  Sender: FDA-Public Use
  Company Number: FR-BRISTOL-MYERS SQUIBB COMPANY-21252416

PATIENT
  Age: 64 Year
  Sex: Male
  Weight: 80 kg

DRUGS (6)
  1. FARMORUBICINE [Concomitant]
     Active Substance: EPIRUBICIN HYDROCHLORIDE
     Indication: HEPATOCELLULAR CARCINOMA
     Dosage: 50 MG, UNK
     Route: 065
     Dates: start: 20140424
  2. DACLATASVIR DIHYDROCHLORIDE [Suspect]
     Active Substance: DACLATASVIR DIHYDROCHLORIDE
     Indication: HEPATITIS C
     Dosage: 60 MG, QD
     Route: 065
     Dates: start: 20140324, end: 20140908
  3. LIPIODOL [Concomitant]
     Active Substance: ETHIODIZED OIL
     Indication: HEPATOCELLULAR CARCINOMA
     Dosage: 10 MG, UNK
     Route: 065
     Dates: start: 20140424
  4. SOFOSBUVIR [Suspect]
     Active Substance: SOFOSBUVIR
     Indication: HEPATITIS C
     Dosage: 400 MG, QD
     Route: 065
     Dates: start: 20140324, end: 20140908
  5. CALDINE [Concomitant]
     Indication: HYPERTENSION
     Dosage: 4 MG, QD
     Route: 065
     Dates: start: 1994
  6. L-CARNITHINE [Concomitant]
     Active Substance: LEVOCARNITINE
     Indication: MYALGIA
     Dosage: UNK
     Route: 065
     Dates: start: 20140519

REACTIONS (5)
  - Pyrexia [Recovered/Resolved]
  - Hepatocellular carcinoma [Unknown]
  - Sepsis [Recovered/Resolved]
  - Respiratory distress [Fatal]
  - Leukocytosis [Recovered/Resolved]

NARRATIVE: CASE EVENT DATE: 201211
